FAERS Safety Report 4799000-1 (Version None)
Quarter: 2005Q4

REPORT INFORMATION
  Report Type: 
  Country: None (occurrence: None)
  Receive Date: 20051013
  Receipt Date: 20050922
  Transmission Date: 20060501
  Serious: Yes (Hospitalization)
  Sender: FDA-Public Use
  Company Number: 218293

PATIENT
  Age: 57 Year
  Sex: Male
  Weight: 84 kg

DRUGS (7)
  1. AVASTIN [Suspect]
     Indication: COLORECTAL CANCER METASTATIC
     Dosage: 600 MG, Q3W, INTRAVENOUS
     Route: 042
     Dates: start: 20050302
  2. CAPECITABINE (CAPACITABINE) [Suspect]
     Indication: COLORECTAL CANCER METASTATIC
     Dosage: 2500 MG, BID, ORAL
     Route: 048
     Dates: start: 20050302
  3. WARFARIN SODIUM [Concomitant]
  4. AMITRIPTYLINE HCL [Concomitant]
  5. BENDROFLUAZIDE (BENDROFLUMETHIAZIDE) [Concomitant]
  6. ATENOLOL [Concomitant]
  7. RANITIDINE [Concomitant]

REACTIONS (1)
  - CELLULITIS [None]
